FAERS Safety Report 25815989 (Version 1)
Quarter: 2025Q3

REPORT INFORMATION
  Report Type: Spontaneous
  Country: EU (occurrence: EU)
  Receive Date: 20250918
  Receipt Date: 20250918
  Transmission Date: 20251021
  Serious: Yes (Other)
  Sender: ORPHALAN
  Company Number: EU-ORPHALAN-GR-ORP-25-00212

PATIENT

DRUGS (3)
  1. TRIENTINE TETRAHYDROCHLORIDE [Suspect]
     Active Substance: TRIENTINE TETRAHYDROCHLORIDE
     Indication: Hepato-lenticular degeneration
     Dosage: 150 MILLIGRAM, TID
  2. VENLAFAXINE [Concomitant]
     Active Substance: VENLAFAXINE HYDROCHLORIDE
     Indication: Product used for unknown indication
  3. OLANZAPINE [Concomitant]
     Active Substance: OLANZAPINE
     Indication: Product used for unknown indication

REACTIONS (1)
  - Epilepsy [Recovered/Resolved]
